FAERS Safety Report 26089976 (Version 2)
Quarter: 2025Q4

REPORT INFORMATION
  Report Type: Spontaneous
  Country: EU (occurrence: EU)
  Receive Date: 20251126
  Receipt Date: 20251215
  Transmission Date: 20260117
  Serious: Yes (Hospitalization)
  Sender: BEIGENE
  Company Number: EU-BEONE MEDICINES-BGN-2025-020699

PATIENT
  Sex: Male

DRUGS (4)
  1. BRUKINSA [Suspect]
     Active Substance: ZANUBRUTINIB
     Indication: Richter^s syndrome
  2. BRUKINSA [Suspect]
     Active Substance: ZANUBRUTINIB
  3. TISLELIZUMAB [Suspect]
     Active Substance: TISLELIZUMAB
     Indication: Richter^s syndrome
  4. TISLELIZUMAB [Suspect]
     Active Substance: TISLELIZUMAB

REACTIONS (2)
  - Blood pressure increased [Recovered/Resolved]
  - Off label use [Unknown]
